FAERS Safety Report 10186711 (Version 1)
Quarter: 2014Q2

REPORT INFORMATION
  Report Type: Report from Study
  Country: US (occurrence: US)
  Receive Date: 20140521
  Receipt Date: 20140521
  Transmission Date: 20141212
  Serious: Yes (Other)
  Sender: FDA-Public Use
  Company Number: PHEH2014US009676

PATIENT
  Sex: Female
  Weight: 103.86 kg

DRUGS (14)
  1. GILENYA [Suspect]
     Indication: MULTIPLE SCLEROSIS
     Dosage: 0.5 MG, QD
     Route: 048
     Dates: start: 20120430
  2. CELEBREX [Concomitant]
     Dosage: 200 MG, UNK
     Route: 048
  3. CLEOCIN [Concomitant]
     Dosage: 150 MG, UNK
     Route: 048
  4. DIOVAN [Concomitant]
     Dosage: 80 MG, UNK
     Route: 048
  5. JANUMET [Concomitant]
     Dosage: 50 MG, BID
     Route: 048
  6. JANUMET [Concomitant]
     Dosage: 1000 MG, BID
  7. JANUVIA [Concomitant]
     Dosage: 50 MG, UNK
     Route: 048
  8. METFORMIN HCL [Concomitant]
     Dosage: 850 MG, UNK
     Route: 048
  9. NAMEDIA [Concomitant]
     Dosage: 10 MG, UNK
     Route: 048
  10. NEURONTIN [Concomitant]
     Dosage: 300 MG, UNK
     Route: 048
  11. OXYBUTYNIN CHLORIDE [Concomitant]
     Dosage: 5 MG, UNK
     Route: 048
  12. SEROQUEL [Concomitant]
     Dosage: 200 MG, UNK
     Route: 048
  13. TRICOR [Concomitant]
     Dosage: Q
     Route: 048
  14. VIT D [Concomitant]
     Dosage: 1000 U, UNK
     Route: 048

REACTIONS (2)
  - Central nervous system lesion [Unknown]
  - Headache [Unknown]
